FAERS Safety Report 7153943-2 (Version None)
Quarter: 2010Q4

REPORT INFORMATION
  Report Type: 
  Country: None (occurrence: None)
  Receive Date: 20101213
  Receipt Date: 20101209
  Transmission Date: 20110411
  Serious: Yes (Other)
  Sender: FDA-Public Use
  Company Number: NL-ROXANE LABORATORIES, INC.-2010-RO-01596RO

PATIENT
  Age: 57 Year
  Sex: Female

DRUGS (2)
  1. LITHIUM CARBONATE [Suspect]
     Indication: BIPOLAR DISORDER
  2. LEVOTHYROXINE [Suspect]
     Indication: HYPOTHYROIDISM

REACTIONS (1)
  - NEPHROPATHY TOXIC [None]
